FAERS Safety Report 4710936-X (Version None)
Quarter: 2005Q2

REPORT INFORMATION
  Report Type: 
  Country: None (occurrence: None)
  Receive Date: 20050629
  Receipt Date: 20050516
  Transmission Date: 20051028
  Serious: No
  Sender: FDA-Public Use
  Company Number: 04P-163-0279863-00

PATIENT
  Age: 72 Year
  Sex: Female
  Weight: 59.4212 kg

DRUGS (6)
  1. HUMIRA [Suspect]
     Indication: RHEUMATOID ARTHRITIS
     Dosage: 40 MG, 1 IN 2 WK, SUBCUTANEOUS
     Route: 058
     Dates: start: 20040401
  2. HYZAAR [Concomitant]
  3. EPOGEN [Concomitant]
  4. IRON [Concomitant]
  5. SIMVASTATIN [Concomitant]
  6. DARVOCET [Concomitant]

REACTIONS (8)
  - ARTHRALGIA [None]
  - ARTHRITIS [None]
  - ARTHROPATHY [None]
  - HEADACHE [None]
  - INJECTION SITE ERYTHEMA [None]
  - INJECTION SITE INDURATION [None]
  - INJECTION SITE PRURITUS [None]
  - RHINORRHOEA [None]
